FAERS Safety Report 6809958-4 (Version None)
Quarter: 2010Q2

REPORT INFORMATION
  Report Type: 
  Country: None (occurrence: None)
  Receive Date: 20100630
  Receipt Date: 20100624
  Transmission Date: 20101027
  Serious: Yes (Hospitalization)
  Sender: FDA-Public Use
  Company Number: A0867470A

PATIENT
  Age: 58 Year
  Sex: Male

DRUGS (2)
  1. PAZOPANIB [Suspect]
     Dosage: 400MG PER DAY
     Route: 048
     Dates: start: 20100413
  2. IXABEPILONE [Suspect]
     Dates: start: 20100413

REACTIONS (3)
  - CHILLS [None]
  - FATIGUE [None]
  - INFECTION [None]
